FAERS Safety Report 26185385 (Version 1)
Quarter: 2025Q4

REPORT INFORMATION
  Report Type: Report from Study
  Country: US (occurrence: US)
  Receive Date: 20251222
  Receipt Date: 20251222
  Transmission Date: 20260118
  Serious: Yes (Hospitalization)
  Sender: GILEAD
  Company Number: US-GILEAD-2025-0741396

PATIENT
  Age: 77 Year
  Sex: Male

DRUGS (24)
  1. AZTREONAM LYSINE [Suspect]
     Active Substance: AZTREONAM LYSINE
     Indication: Cystic fibrosis
     Dosage: 75 MG, INHALE 1 VIAL VIA NEBULIZER EVERY 8 HOURS FOR 28 DAYS ON AND 28 DAYS OFF
     Route: 055
     Dates: start: 20221007
  2. ALBUTOL [SALBUTAMOL SULFATE] [Concomitant]
  3. BACLOFEN [Concomitant]
     Active Substance: BACLOFEN
  4. BUDESONIDE [Concomitant]
     Active Substance: BUDESONIDE
  5. COMBIVENT [Concomitant]
     Active Substance: ALBUTEROL SULFATE\IPRATROPIUM BROMIDE
  6. DULERA [Concomitant]
     Active Substance: FORMOTEROL FUMARATE DIHYDRATE\MOMETASONE FUROATE
  7. ELIQUIS [Concomitant]
     Active Substance: APIXABAN
  8. FLUTICASONE FUROATE\SALMETEROL XINAFOATE [Concomitant]
     Active Substance: FLUTICASONE FUROATE\SALMETEROL XINAFOATE
  9. FLUTICASONE [Concomitant]
     Active Substance: FLUTICASONE
  10. LANTUS [Concomitant]
     Active Substance: INSULIN GLARGINE
  11. LORAZEPAM [Concomitant]
     Active Substance: LORAZEPAM
  12. LOSARTAN [Concomitant]
     Active Substance: LOSARTAN
  13. LUBIPROSTONE [Concomitant]
     Active Substance: LUBIPROSTONE
  14. MONTELUKAST [Concomitant]
     Active Substance: MONTELUKAST
  15. MORPHINE [Concomitant]
     Active Substance: MORPHINE
  16. OMEPRAZOLE [Concomitant]
     Active Substance: OMEPRAZOLE
  17. PREDNISONE [Concomitant]
     Active Substance: PREDNISONE
  18. PULMOZYME [Concomitant]
     Active Substance: DORNASE ALFA
  19. SILDENAFIL [Concomitant]
     Active Substance: SILDENAFIL
  20. TAMSULOSIN [Concomitant]
     Active Substance: TAMSULOSIN
  21. TRAZODONE [Concomitant]
     Active Substance: TRAZODONE HYDROCHLORIDE
  22. TRELEGY ELLIPTA [Concomitant]
     Active Substance: FLUTICASONE FUROATE\UMECLIDINIUM BROMIDE\VILANTEROL TRIFENATATE
  23. TRIKAFTA [Concomitant]
     Active Substance: ELEXACAFTOR\IVACAFTOR\TEZACAFTOR
  24. VORICONAZOLE [Concomitant]
     Active Substance: VORICONAZOLE

REACTIONS (17)
  - Dyspnoea [Unknown]
  - Infection [Unknown]
  - Cystic fibrosis respiratory infection suppression [Unknown]
  - Respiratory symptom [Not Recovered/Not Resolved]
  - Exercise tolerance decreased [Not Recovered/Not Resolved]
  - Wheezing [Not Recovered/Not Resolved]
  - Gastrointestinal disorder [Not Recovered/Not Resolved]
  - Flatulence [Not Recovered/Not Resolved]
  - Abdominal pain upper [Not Recovered/Not Resolved]
  - Constipation [Unknown]
  - Pain [Not Recovered/Not Resolved]
  - Fatigue [Unknown]
  - Sleep disorder [Unknown]
  - Loss of personal independence in daily activities [Unknown]
  - Social problem [Unknown]
  - Oropharyngeal pain [Unknown]
  - Product dose omission issue [Unknown]
